FAERS Safety Report 5742909-2 (Version None)
Quarter: 2008Q2

REPORT INFORMATION
  Report Type: 
  Country: None (occurrence: None)
  Receive Date: 20080519
  Receipt Date: 20080515
  Transmission Date: 20081010
  Serious: Yes (Life-Threatening)
  Sender: FDA-Public Use
  Company Number: JP-ASTRAZENECA-2008AP03716

PATIENT
  Age: 83 Year
  Sex: Male
  Weight: 45 kg

DRUGS (15)
  1. XYLOCAINE [Suspect]
     Indication: EPIDURAL ANAESTHESIA
     Route: 008
  2. PROPOFOL [Concomitant]
     Indication: INDUCTION OF ANAESTHESIA
     Dosage: DOSE UNKNOWN
     Route: 065
  3. FENTANYL CITRATE [Concomitant]
     Indication: INDUCTION OF ANAESTHESIA
     Dosage: DOSE UNKNOWN
     Route: 065
  4. VECURONIUM BROMIDE [Concomitant]
     Indication: INDUCTION OF ANAESTHESIA
     Dosage: DOSE UNKNOWN
     Route: 065
  5. NITROUS OXIDE_OXYGEN [Concomitant]
     Indication: MAINTENANCE OF ANAESTHESIA
     Dosage: DOSE UNKNOWN
     Route: 055
  6. SEVOFLURANE [Concomitant]
     Indication: MAINTENANCE OF ANAESTHESIA
     Dosage: DOSE UNKNOWN
     Route: 055
  7. MORPHINE HCL ELIXIR [Concomitant]
     Dosage: DILUTED WITH 5 ML OF SALINE SOLUTION
     Route: 008
  8. ALBUMIN (HUMAN) [Concomitant]
     Route: 065
  9. ACETATED RINGER [Concomitant]
     Dosage: DOSE UNKNOWN
     Route: 065
  10. SALINHES [Concomitant]
     Route: 065
  11. LANDIOLOL HYDROCHLORIDE [Concomitant]
     Route: 065
  12. MORPHINE HCL ELIXIR [Concomitant]
     Indication: POSTOPERATIVE ANALGESIA
     Dosage: DILUTED WITH 50 ML OF SALINE SOLUTION AND ADMINISTERED CONTINUOUSLY AT 0.4 ML/HR
     Route: 008
  13. PENTAZOCINE LACTATE [Concomitant]
     Indication: PAIN
     Dosage: DOSE UNKNOWN
     Route: 042
  14. HYDROXYZINE HYDROCHLORIDE [Concomitant]
     Indication: PAIN
     Dosage: DOSE UNKNOWN
     Route: 042
  15. VOLTAREN [Concomitant]
     Indication: PAIN
     Dosage: DOSE UNKNOWN
     Route: 054

REACTIONS (1)
  - GUILLAIN-BARRE SYNDROME [None]
